FAERS Safety Report 8825813 (Version 2)
Quarter: 2012Q4

REPORT INFORMATION
  Report Type: 
  Country: US (occurrence: US)
  Receive Date: 20121004
  Receipt Date: 20121011
  Transmission Date: 20130627
  Serious: Yes (Other)
  Sender: FDA-Public Use
  Company Number: US-ASTRAZENECA-2012SE74305

PATIENT
  Age: 53 Year
  Sex: Male
  Weight: 106.6 kg

DRUGS (4)
  1. SEROQUEL XR [Suspect]
     Indication: BIPOLAR DISORDER
     Route: 048
     Dates: start: 2010
  2. SEROQUEL XR [Suspect]
     Indication: SLEEP DISORDER
     Route: 048
     Dates: start: 2010
  3. PROZAC [Concomitant]
     Indication: BIPOLAR DISORDER
     Route: 048
  4. LORAZEPAM [Concomitant]
     Indication: ANXIETY DISORDER
     Route: 048

REACTIONS (13)
  - Head injury [Unknown]
  - Laceration [Unknown]
  - Laceration [Unknown]
  - Road traffic accident [Unknown]
  - Multiple injuries [Unknown]
  - Neck injury [Unknown]
  - Pneumothorax [Unknown]
  - Contusion [Unknown]
  - Insomnia [Unknown]
  - Headache [Unknown]
  - Musculoskeletal stiffness [Unknown]
  - Intentional drug misuse [Unknown]
  - Drug dose omission [Unknown]
